FAERS Safety Report 5202872-X (Version None)
Quarter: 2006Q4

REPORT INFORMATION
  Report Type: 
  Country: None (occurrence: None)
  Receive Date: 20061016
  Receipt Date: 20060322
  Transmission Date: 20070319
  Serious: Yes (Other)
  Sender: FDA-Public Use
  Company Number: 2006040903

PATIENT
  Sex: Male
  Weight: 61.2356 kg

DRUGS (5)
  1. NEURONTIN [Suspect]
     Indication: CONVULSION
     Dosage: 900 MG (300 MG, 3 IN 1 D)
  2. NEURONTIN [Suspect]
     Indication: PAIN
     Dosage: 900 MG (300 MG, 3 IN 1 D)
  3. GABAPENTIN [Suspect]
     Indication: CONVULSION
     Dates: start: 20050101, end: 20050101
  4. GABAPENTIN [Suspect]
     Indication: PAIN
     Dates: start: 20050101, end: 20050101
  5. CODEINE SUL TAB [Concomitant]

REACTIONS (3)
  - CONVULSION [None]
  - DRUG EFFECT DECREASED [None]
  - DRUG INEFFECTIVE [None]
